FAERS Safety Report 7346359-7 (Version None)
Quarter: 2011Q1

REPORT INFORMATION
  Report Type: 
  Country: None (occurrence: None)
  Receive Date: 20110301
  Receipt Date: 20110221
  Transmission Date: 20110831
  Serious: Yes (Other)
  Sender: FDA-Public Use
  Company Number: 8014076

PATIENT
  Sex: Male
  Weight: 89 kg

DRUGS (15)
  1. DISTALGESIC [Concomitant]
  2. LEVITRA [Concomitant]
  3. AMLODIPINE [Concomitant]
  4. ATORVASTATIN CALCIUM [Concomitant]
  5. NAPROXEN [Concomitant]
  6. PLAQUENIL [Concomitant]
  7. OTRVINE [Concomitant]
  8. ATENOLOL [Concomitant]
  9. CERTOLIZUMAB PEGOL (CERTOLIZUMAB PEGOL) [Suspect]
     Indication: RHEUMATOID ARTHRITIS
     Dosage: 400 MG 1X/MONTH SUBCUTANEOUS, 400 MG 1X/MONTH SUBCUTANEOUS
     Route: 058
     Dates: start: 20030519, end: 20030930
  10. CERTOLIZUMAB PEGOL (CERTOLIZUMAB PEGOL) [Suspect]
     Indication: RHEUMATOID ARTHRITIS
     Dosage: 400 MG 1X/MONTH SUBCUTANEOUS, 400 MG 1X/MONTH SUBCUTANEOUS
     Route: 058
     Dates: start: 20031105, end: 20061205
  11. ASPIRIN [Concomitant]
  12. OMNIC [Concomitant]
  13. DELTACORTRIL /00016201/ [Concomitant]
  14. FOLIC ACID [Concomitant]
  15. CALCICHEW [Concomitant]

REACTIONS (3)
  - GOITRE [None]
  - TRACHEAL DISORDER [None]
  - WEIGHT INCREASED [None]
